FAERS Safety Report 7226904-2 (Version None)
Quarter: 2011Q1

REPORT INFORMATION
  Report Type: 
  Country: None (occurrence: None)
  Receive Date: 20110114
  Receipt Date: 20101229
  Transmission Date: 20110831
  Serious: No
  Sender: FDA-Public Use
  Company Number: US-B.I. PHARMACEUTICALS,INC./RIDGEFIELD-2010-BP-13765BP

PATIENT
  Sex: Male

DRUGS (14)
  1. BENICAR [Concomitant]
  2. LOVASTATIN [Concomitant]
  3. PRADAXA [Suspect]
     Indication: ATRIAL FIBRILLATION
     Dosage: 300 MG
     Route: 048
     Dates: start: 20101122
  4. ASPIRIN [Concomitant]
  5. VITAMIN E [Concomitant]
  6. KLOR-CON [Concomitant]
  7. PRADAXA [Suspect]
     Indication: ATRIAL FLUTTER
  8. SOTALOL [Concomitant]
  9. GABAPENTIN [Concomitant]
     Dosage: 1200 MG
  10. FISH OIL [Concomitant]
     Dosage: 2400 MG
  11. NORVASC [Concomitant]
     Indication: HYPERTENSION
  12. FUROSEMIDE [Concomitant]
  13. VITMAIN D [Concomitant]
  14. MULTI-VITAMIN [Concomitant]

REACTIONS (2)
  - VERTIGO [None]
  - ABDOMINAL DISCOMFORT [None]
